FAERS Safety Report 7414889-5 (Version None)
Quarter: 2011Q2

REPORT INFORMATION
  Report Type: 
  Country: None (occurrence: None)
  Receive Date: 20110405
  Receipt Date: 20110321
  Transmission Date: 20111010
  Serious: Yes (Death)
  Sender: FDA-Public Use
  Company Number: AE 2011-102

PATIENT
  Age: 51 Year
  Sex: Male

DRUGS (1)
  1. FAZACLO ODT [Suspect]
     Dosage: 350 MG DAILY PO
     Route: 048
     Dates: start: 20080910, end: 20110121

REACTIONS (1)
  - DEATH [None]
